FAERS Safety Report 5102721-4 (Version None)
Quarter: 2006Q3

REPORT INFORMATION
  Report Type: 
  Country: None (occurrence: None)
  Receive Date: 20060907
  Receipt Date: 20060828
  Transmission Date: 20061208
  Serious: Yes (Hospitalization)
  Sender: FDA-Public Use
  Company Number: 2006-147003-NL

PATIENT
  Age: 33 Year
  Sex: Female

DRUGS (3)
  1. FOLLITROPIN BETA [Suspect]
     Dosage: DF
  2. CHORIONIC GONDATROPHIN [Suspect]
     Dosage: DF
  3. MENOTROPINS [Suspect]
     Dosage: DF

REACTIONS (3)
  - DYSAESTHESIA [None]
  - HYPERAESTHESIA [None]
  - MYELITIS [None]
